FAERS Safety Report 13984685 (Version 1)
Quarter: 2017Q3

REPORT INFORMATION
  Report Type: Spontaneous
  Country: US (occurrence: US)
  Receive Date: 20170918
  Receipt Date: 20170918
  Transmission Date: 20171128
  Serious: No
  Sender: FDA-Public Use
  Company Number: US-TEIKOKU PHARMA USA-TPU2017-00548

PATIENT
  Sex: Female
  Weight: 65.38 kg

DRUGS (27)
  1. SIMVASTATIN. [Concomitant]
     Active Substance: SIMVASTATIN
     Indication: BLOOD CHOLESTEROL
     Dates: start: 2012
  2. VITAMIN D [Concomitant]
     Active Substance: CHOLECALCIFEROL
     Indication: OSTEOPOROSIS
  3. ZOLOFT [Concomitant]
     Active Substance: SERTRALINE HYDROCHLORIDE
     Indication: DEPRESSION
     Dates: start: 201705
  4. ISOSORBIDE MN ER TABS [Concomitant]
     Indication: CARDIAC DISORDER
  5. BIOTIN [Concomitant]
     Active Substance: BIOTIN
     Indication: ALOPECIA
     Dates: start: 201702
  6. TYLENOL [Concomitant]
     Active Substance: ACETAMINOPHEN
     Indication: PAIN
  7. MORPHINE SULFATE ER TABLETS [Concomitant]
     Dates: start: 20170831
  8. WARFARIN [Concomitant]
     Active Substance: WARFARIN
     Dates: start: 2012
  9. IRON [Concomitant]
     Active Substance: IRON
  10. VITAMIN C [Concomitant]
     Active Substance: ASCORBIC ACID
  11. LOSARTAN. [Suspect]
     Active Substance: LOSARTAN
     Indication: HYPERTENSION
  12. HYDRALIZINE [Concomitant]
     Indication: HYPERTENSION
     Dosage: 10MG TWICE A DAY AS DEPENDING ON ACTIVITIES THAT ARE NOT CLOSE TO A BATHROOM
     Dates: start: 20170303
  13. LIALDA [Concomitant]
     Active Substance: MESALAMINE
     Dates: start: 2015, end: 201707
  14. VITAMIN B12 [Concomitant]
     Active Substance: CYANOCOBALAMIN
     Indication: FIBROMYALGIA
  15. OCUVITE LUTINE WITH ANTIOXIDENTS [Concomitant]
     Indication: CATARACT OPERATION
  16. DULCOLAX NOS [Concomitant]
     Active Substance: BISACODYL OR DOCUSATE SODIUM
     Indication: CONSTIPATION
     Dosage: AS NEEDED FOR STOOL SOFTENING
  17. WARFARIN [Concomitant]
     Active Substance: WARFARIN
     Indication: ANTICOAGULANT THERAPY
     Dates: start: 2012
  18. METOPROLOL. [Concomitant]
     Active Substance: METOPROLOL
     Indication: MYOCARDIAL INFARCTION
  19. MULTIVITAMIN [Concomitant]
     Active Substance: VITAMINS
     Indication: OSTEOPOROSIS
  20. TYLENOL [Concomitant]
     Active Substance: ACETAMINOPHEN
     Indication: HEADACHE
  21. LIDOCAINE PATCH [Suspect]
     Active Substance: LIDOCAINE
     Indication: MUSCULOSKELETAL PAIN
     Dosage: APPLY TO RIGHT SHOULDER DAILY
     Route: 061
     Dates: start: 20170423
  22. DILAUDID [Concomitant]
     Active Substance: HYDROMORPHONE HYDROCHLORIDE
     Indication: BREAKTHROUGH PAIN
     Dosage: 2 AS NEEDED FOR BREAKTHROUGH PAIN
     Dates: start: 1963
  23. MORPHINE SULFATE ER TABLETS [Concomitant]
     Dates: start: 1963, end: 20170831
  24. LEVOTHYROXINE. [Concomitant]
     Active Substance: LEVOTHYROXINE
     Indication: THYROID DISORDER
  25. CALCIUM 600MG AND VITAMIN D 800IU [Concomitant]
     Indication: OSTEOPOROSIS
  26. SUPER B COMPLEX WITH ELECTOLYTES [Concomitant]
     Indication: ROUTINE HEALTH MAINTENANCE
  27. GASX [Concomitant]
     Indication: FLATULENCE
     Dosage: AS NEEDED FOR GAS FROM DOCULOX

REACTIONS (4)
  - Headache [Unknown]
  - Epistaxis [Unknown]
  - Dizziness [Unknown]
  - Constipation [Unknown]
